FAERS Safety Report 11442149 (Version 1)
Quarter: 2015Q3

REPORT INFORMATION
  Report Type: Spontaneous
  Country: FR (occurrence: FR)
  Receive Date: 20150901
  Receipt Date: 20150901
  Transmission Date: 20151125
  Serious: Yes (Life-Threatening, Hospitalization, Other)
  Sender: FDA-Public Use
  Company Number: FR-TEVA-588704ISR

PATIENT
  Age: 28 Year
  Sex: Female

DRUGS (12)
  1. ALPRAZOLAM. [Suspect]
     Active Substance: ALPRAZOLAM
     Route: 048
     Dates: start: 20150615
  2. KARDEGIC [Concomitant]
     Active Substance: ASPIRIN LYSINE
     Dosage: 1 DOSAGE FORMS DAILY; LONG-STANDING TREATMENT
     Route: 048
  3. LORAZEPAM MYLAN 1 MG [Concomitant]
     Dosage: 3 DOSAGE FORMS DAILY; LONG-STANDING TREATMENT
     Route: 048
  4. NICORETTESKIN [Concomitant]
     Dosage: 1 DOSAGE FORMS DAILY; LONG-STANDING TREATMENT
     Route: 062
  5. BROMAZEPAM [Suspect]
     Active Substance: BROMAZEPAM
     Route: 048
     Dates: start: 20150615
  6. TAHOR 40 MG [Concomitant]
     Dosage: 1 DOSAGE FORMS DAILY; LONG-STANDING TREATMENT
     Route: 048
  7. IMOVANE [Concomitant]
     Active Substance: ZOPICLONE
     Dosage: 1 DOSAGE FORMS DAILY; LONG-STANDING TREATMENT
     Route: 048
  8. ISOPTIN [Suspect]
     Active Substance: VERAPAMIL HYDROCHLORIDE
     Dosage: 1 DOSAGE FORMS DAILY; LONG-STANDING TREATMENT
     Route: 048
  9. PROPRANOLOL [Suspect]
     Active Substance: PROPRANOLOL\PROPRANOLOL HYDROCHLORIDE
     Dosage: LONG-STANDING TREATMENT
     Route: 048
  10. ISOPTIN [Suspect]
     Active Substance: VERAPAMIL HYDROCHLORIDE
     Dosage: 20 DOSAGE FORMS DAILY;
     Route: 048
     Dates: start: 20150615
  11. PROPRANOLOL [Suspect]
     Active Substance: PROPRANOLOL\PROPRANOLOL HYDROCHLORIDE
     Dosage: 5 TO 6 TABLETS
     Route: 048
     Dates: start: 20150615
  12. PAROXETINE ARROW 20 MG [Concomitant]
     Dosage: 1 DOSAGE FORMS DAILY; LONG-STANDING TREATMENT
     Route: 048

REACTIONS (6)
  - Toxicity to various agents [Recovered/Resolved]
  - Cardio-respiratory arrest [Recovered/Resolved]
  - Acute kidney injury [Recovered/Resolved]
  - Hyperkalaemia [Recovered/Resolved]
  - Coma [Recovered/Resolved]
  - Cardiogenic shock [Recovered/Resolved]

NARRATIVE: CASE EVENT DATE: 20150615
